FAERS Safety Report 9016136 (Version 3)
Quarter: 2013Q2

REPORT INFORMATION
  Report Type: Spontaneous
  Country: US (occurrence: US)
  Receive Date: 20130116
  Receipt Date: 20130419
  Transmission Date: 20140414
  Serious: No
  Sender: FDA-Public Use
  Company Number: US-009507513-1301USA006075

PATIENT
  Age: 20 Year
  Sex: Female

DRUGS (2)
  1. NEXPLANON [Suspect]
     Dosage: UNK
     Dates: start: 20121126, end: 20130211
  2. NEXPLANON [Suspect]
     Dosage: UNK
     Dates: start: 20130211

REACTIONS (3)
  - Complication of device insertion [Unknown]
  - Product quality issue [Unknown]
  - No adverse event [Unknown]
